FAERS Safety Report 5697145-5 (Version None)
Quarter: 2008Q2

REPORT INFORMATION
  Report Type: 
  Country: None (occurrence: None)
  Receive Date: 20080408
  Receipt Date: 20070606
  Transmission Date: 20081010
  Serious: No
  Sender: FDA-Public Use
  Company Number: US-BAYER-US-2007-021290

PATIENT
  Age: 39 Year
  Sex: Female
  Weight: 44 kg

DRUGS (2)
  1. YASMIN [Suspect]
     Indication: CONTRACEPTION
     Route: 048
     Dates: start: 20070501
  2. ADVAIR HFA [Concomitant]

REACTIONS (2)
  - DIZZINESS [None]
  - NAUSEA [None]
